FAERS Safety Report 8367803-2 (Version None)
Quarter: 2012Q2

REPORT INFORMATION
  Report Type: 
  Country: None (occurrence: None)
  Receive Date: 20120517
  Receipt Date: 20120515
  Transmission Date: 20120825
  Serious: Yes (Death)
  Sender: FDA-Public Use
  Company Number: US-ROCHE-1068930

PATIENT
  Age: 75 Year
  Sex: Male

DRUGS (4)
  1. RITUXAN [Suspect]
     Indication: RHEUMATOID ARTHRITIS
     Dates: start: 20120313
  2. RITUXAN [Suspect]
     Dates: start: 20120406
  3. RITUXAN [Suspect]
     Dates: start: 20120327
  4. RITUXAN [Suspect]
     Dates: start: 20120413

REACTIONS (4)
  - SEPSIS [None]
  - RENAL FAILURE [None]
  - RESPIRATORY FAILURE [None]
  - PULMONARY EMBOLISM [None]
